FAERS Safety Report 6856849-9 (Version None)
Quarter: 2010Q3

REPORT INFORMATION
  Report Type: 
  Country: None (occurrence: None)
  Receive Date: 20100714
  Receipt Date: 20100705
  Transmission Date: 20110219
  Serious: Yes (Other)
  Sender: FDA-Public Use
  Company Number: GB-1182486

PATIENT
  Sex: Male

DRUGS (6)
  1. DEXAMETHASONE (DEXAMETHASONE) 0.1% OPHTHALMIC SUSPENSION EYE DROPS, SO [Suspect]
     Dosage: OPHTHALMIC
     Route: 047
  2. CHLORAMBUCIL (CHLORAMBUCIL) [Suspect]
  3. BACTRIM [Suspect]
  4. ETOPOSIDE (ETOPOSIDE) TABLETS TABLET [Suspect]
     Dosage: ORAL
     Route: 048
  5. LOMUSTINE (LOMUSTINE) [Suspect]
  6. ONDANSETRON [Suspect]

REACTIONS (1)
  - CARDIOMYOPATHY [None]
